FAERS Safety Report 19508116 (Version 1)
Quarter: 2021Q3

REPORT INFORMATION
  Report Type: Spontaneous
  Country: FR (occurrence: FR)
  Receive Date: 20210708
  Receipt Date: 20210708
  Transmission Date: 20211014
  Serious: Yes (Hospitalization)
  Sender: FDA-Public Use
  Company Number: FR-PFIZER INC-2021794780

PATIENT
  Age: 32 Year
  Sex: Female
  Weight: 54 kg

DRUGS (8)
  1. SERESTA [Suspect]
     Active Substance: OXAZEPAM
     Dosage: UNK
     Dates: start: 2020
  2. SERESTA [Suspect]
     Active Substance: OXAZEPAM
     Dosage: 12 DF, SINGLE (12 TABLETS OF 50 MG)
     Dates: start: 20200925
  3. COCAINE [Suspect]
     Active Substance: COCAINE
     Dosage: 4 G, 1X/DAY
     Route: 042
     Dates: start: 20200925
  4. SUBUTEX [Suspect]
     Active Substance: BUPRENORPHINE HYDROCHLORIDE
     Dosage: UNK
     Dates: start: 2018
  5. LYRICA [Suspect]
     Active Substance: PREGABALIN
     Indication: EPILEPSY
     Dosage: UNK
     Dates: start: 2020
  6. LYRICA [Suspect]
     Active Substance: PREGABALIN
     Dosage: 21 DF, SINGLE (21 TABLETS OF 300 MG)
     Dates: start: 20200925
  7. SUBUTEX [Suspect]
     Active Substance: BUPRENORPHINE HYDROCHLORIDE
     Dosage: 2 MG, SINGLE
     Dates: start: 20200925
  8. COCAINE [Suspect]
     Active Substance: COCAINE
     Dosage: UNK (BASED, SNORTED, IV)
     Dates: start: 2015

REACTIONS (1)
  - Drug abuse [Recovering/Resolving]

NARRATIVE: CASE EVENT DATE: 20200925
